FAERS Safety Report 18600697 (Version 1)
Quarter: 2020Q4

REPORT INFORMATION
  Report Type: Report from Study
  Country: DE (occurrence: DE)
  Receive Date: 20201210
  Receipt Date: 20201210
  Transmission Date: 20210114
  Serious: Yes (Hospitalization, Other)
  Sender: FDA-Public Use
  Company Number: DE-PFIZER INC-2004227500DE

PATIENT
  Age: 15 Month
  Sex: Male

DRUGS (1)
  1. HEPARIN SODIUM. [Suspect]
     Active Substance: HEPARIN SODIUM
     Indication: THROMBOSIS PROPHYLAXIS
     Dosage: UNK

REACTIONS (5)
  - Pericardial effusion [Recovered/Resolved]
  - Ascites [Recovered/Resolved]
  - Peritonitis [Unknown]
  - Heparin-induced thrombocytopenia [Recovered/Resolved]
  - Pleural effusion [Recovered/Resolved]
